FAERS Safety Report 17473641 (Version 1)
Quarter: 2020Q1

REPORT INFORMATION
  Report Type: Spontaneous
  Country: US (occurrence: US)
  Receive Date: 20200228
  Receipt Date: 20200228
  Transmission Date: 20200409
  Serious: No
  Sender: FDA-Public Use
  Company Number: US-HORIZON-PRO-0056-2020

PATIENT
  Age: 28 Year
  Sex: Male

DRUGS (1)
  1. PROCYSBI [Suspect]
     Active Substance: CYSTEAMINE BITARTRATE
     Indication: CYSTINOSIS
     Dosage: 450MG (6X75MG CAPSULES) BY MOUTH TWICE A DAY
     Route: 048
     Dates: start: 20150801

REACTIONS (2)
  - Intentional product use issue [Unknown]
  - Abdominal pain upper [Unknown]
